FAERS Safety Report 8839833 (Version 1)
Quarter: 2012Q4

REPORT INFORMATION
  Report Type: 
  Country: US (occurrence: US)
  Receive Date: 20121015
  Receipt Date: 20121015
  Transmission Date: 20130627
  Serious: No
  Sender: FDA-Public Use
  Company Number: US-BRISTOL-MYERS SQUIBB COMPANY-16406555

PATIENT
  Age: 43 Year
  Sex: Female
  Weight: 45 kg

DRUGS (1)
  1. KENALOG-40 INJ [Suspect]
     Indication: NERVE COMPRESSION
     Dosage: 2 inj:12Jan2012 3:20Jan2012
     Route: 008
     Dates: start: 20111207

REACTIONS (6)
  - Paraesthesia [Not Recovered/Not Resolved]
  - Pruritus [Not Recovered/Not Resolved]
  - Erythema [Unknown]
  - Swelling face [Unknown]
  - Oropharyngeal pain [Unknown]
  - Flushing [Unknown]
